FAERS Safety Report 9248672 (Version 2)
Quarter: 2013Q2

REPORT INFORMATION
  Report Type: Spontaneous
  Country: IT (occurrence: IT)
  Receive Date: 20130423
  Receipt Date: 20130423
  Transmission Date: 20140414
  Serious: Yes (Hospitalization)
  Sender: FDA-Public Use
  Company Number: IT-ROCHE-1215108

PATIENT
  Age: 89 Year
  Sex: Female

DRUGS (8)
  1. ROCEFIN [Suspect]
     Indication: BRONCHITIS
     Route: 065
     Dates: start: 20120530, end: 20120604
  2. CLEXANE [Concomitant]
  3. LUCEN [Concomitant]
  4. LASIX [Concomitant]
  5. BLOPRESS [Concomitant]
  6. NEXIUM [Concomitant]
  7. FLECTADOL [Concomitant]
  8. GAVISCON (ITALY) [Concomitant]

REACTIONS (1)
  - Dysentery [Unknown]
